FAERS Safety Report 18711869 (Version 1)
Quarter: 2021Q1

REPORT INFORMATION
  Report Type: Spontaneous
  Country: CA (occurrence: CA)
  Receive Date: 20210107
  Receipt Date: 20210107
  Transmission Date: 20210419
  Serious: Yes (Death, Hospitalization, Other)
  Sender: FDA-Public Use
  Company Number: CA-APOTEX-2021AP001010

PATIENT
  Age: 64 Year
  Sex: Female

DRUGS (1)
  1. ACETAMINOPHEN. [Suspect]
     Active Substance: ACETAMINOPHEN
     Indication: PRODUCT USED FOR UNKNOWN INDICATION
     Dosage: UNK (150 TABLETS (75G))
     Route: 048

REACTIONS (6)
  - Haemodynamic instability [Fatal]
  - Acute hepatic failure [Fatal]
  - Intentional overdose [Fatal]
  - Metabolic acidosis [Fatal]
  - Oliguria [Fatal]
  - Encephalopathy [Fatal]
